FAERS Safety Report 11722423 (Version 27)
Quarter: 2019Q3

REPORT INFORMATION
  Report Type: Spontaneous
  Country: US (occurrence: US)
  Receive Date: 20151111
  Receipt Date: 20190805
  Transmission Date: 20191004
  Serious: Yes (Congenital Anomaly, Other)
  Sender: FDA-Public Use
  Company Number: PHEH2015US022840

PATIENT
  Sex: Female

DRUGS (3)
  1. ONDANSETRON HYDROCHLORIDE. [Suspect]
     Active Substance: ONDANSETRON HYDROCHLORIDE
     Indication: FOETAL EXPOSURE DURING PREGNANCY
     Dosage: MOTHER^S DOSE: 4 MG, UNK
     Route: 064
  2. ONDANSETRON HYDROCHLORIDE. [Suspect]
     Active Substance: ONDANSETRON HYDROCHLORIDE
     Indication: FOETAL EXPOSURE DURING PREGNANCY
     Dosage: MOTHER DOSE: 4 MG PER 2 ML, QD
     Route: 064
  3. ZOFRAN ODT [Suspect]
     Active Substance: ONDANSETRON HYDROCHLORIDE
     Indication: FOETAL EXPOSURE DURING PREGNANCY
     Dosage: MOTHER^S DOSE: 4 MG, THREE TIMES DAILY (TID)
     Route: 064

REACTIONS (59)
  - Transposition of the great vessels [Unknown]
  - Multiple congenital abnormalities [Unknown]
  - Heart disease congenital [Unknown]
  - Atrial septal defect [Unknown]
  - Anhedonia [Unknown]
  - Otitis media acute [Unknown]
  - Vomiting [Unknown]
  - Insomnia [Unknown]
  - Bronchial hyperreactivity [Unknown]
  - Coarctation of the aorta [Unknown]
  - Hypoplastic right heart syndrome [Unknown]
  - Foetal exposure during pregnancy [Unknown]
  - Injury [Unknown]
  - Emotional distress [Unknown]
  - Upper respiratory tract infection [Unknown]
  - Asthma [Unknown]
  - Dental caries [Unknown]
  - Arthralgia [Unknown]
  - Hypoplastic left heart syndrome [Unknown]
  - Congenital anomaly [Unknown]
  - Acute kidney injury [Unknown]
  - Scar [Unknown]
  - Dermatitis diaper [Unknown]
  - Eczema [Recovered/Resolved]
  - Dysphagia [Unknown]
  - Shone complex [Unknown]
  - Otitis media chronic [Unknown]
  - Epistaxis [Unknown]
  - Cough [Unknown]
  - Feeding disorder [Unknown]
  - Right atrial dilatation [Unknown]
  - Patent ductus arteriosus [Unknown]
  - Anxiety [Unknown]
  - Constipation [Unknown]
  - Rhinorrhoea [Unknown]
  - Pulmonary oedema [Unknown]
  - Snoring [Unknown]
  - Wheezing [Unknown]
  - Ear infection [Unknown]
  - Congenital pulmonary hypertension [Unknown]
  - Renal tubular necrosis [Unknown]
  - Acute respiratory failure [Unknown]
  - Pain [Unknown]
  - Gastroenteritis viral [Unknown]
  - Teething [Unknown]
  - Rhinitis [Unknown]
  - Tonsillar hypertrophy [Unknown]
  - Eustachian tube dysfunction [Unknown]
  - Fall [Unknown]
  - Left-to-right cardiac shunt [Unknown]
  - Mitral valve incompetence [Unknown]
  - Bronchiolitis [Unknown]
  - Hyperkalaemia [Unknown]
  - Gastrooesophageal reflux disease [Recovered/Resolved]
  - Acute sinusitis [Unknown]
  - Nasopharyngitis [Unknown]
  - Adenoidal hypertrophy [Unknown]
  - Atypical pneumonia [Unknown]
  - Cardiac murmur [Unknown]
